FAERS Safety Report 5652457-6 (Version None)
Quarter: 2008Q1

REPORT INFORMATION
  Report Type: 
  Country: None (occurrence: None)
  Receive Date: 20080305
  Receipt Date: 20080305
  Transmission Date: 20080703
  Serious: Yes (Hospitalization)
  Sender: FDA-Public Use
  Company Number: None

PATIENT
  Age: 32 Year
  Sex: Female
  Weight: 45.3597 kg

DRUGS (2)
  1. ARANESP [Suspect]
     Indication: ANAEMIA
     Dosage: 300 MG EVERY OTHER WEEK SQ
     Route: 058
     Dates: start: 20070816, end: 20070906
  2. ARANESP [Suspect]
     Indication: ANAEMIA
     Dosage: 200 MG EVERY OTHER WEEK SQ
     Route: 058
     Dates: start: 20070226, end: 20070920

REACTIONS (4)
  - HEPATIC FAILURE [None]
  - PAIN [None]
  - PYREXIA [None]
  - RENAL FAILURE [None]
